FAERS Safety Report 4467253-5 (Version None)
Quarter: 2004Q4

REPORT INFORMATION
  Report Type: 
  Country: None (occurrence: None)
  Receive Date: 20041001
  Receipt Date: 20040922
  Transmission Date: 20050328
  Serious: Yes (Other)
  Sender: FDA-Public Use
  Company Number: 25040

PATIENT
  Age: 36 Year
  Sex: Female

DRUGS (3)
  1. ALDARA [Suspect]
     Indication: SKIN PAPILLOMA
     Dosage: 1 IN 1 DAY (S), TOPICAL
     Route: 061
     Dates: start: 20040501, end: 20040501
  2. AVONEX [Concomitant]
  3. EFFEXOR [Concomitant]

REACTIONS (4)
  - ASTHENIA [None]
  - CONDITION AGGRAVATED [None]
  - HYPOAESTHESIA [None]
  - MULTIPLE SCLEROSIS [None]
